FAERS Safety Report 8510519-X (Version None)
Quarter: 2012Q3

REPORT INFORMATION
  Report Type: 
  Country: None (occurrence: None)
  Receive Date: 20120716
  Receipt Date: 20120709
  Transmission Date: 20120928
  Serious: Yes (Disabling)
  Sender: FDA-Public Use
  Company Number: AU-AMGEN-AUSSP2012042529

PATIENT
  Age: 72 Year
  Sex: Male
  Weight: 69 kg

DRUGS (2)
  1. ARANESP [Suspect]
     Dosage: 20 MUG, Q2WK
     Route: 058
     Dates: start: 20120202, end: 20120202
  2. ARANESP [Suspect]
     Indication: PRODUCT USED FOR UNKNOWN INDICATION
     Dosage: UNK UNK, Q2WK
     Route: 058

REACTIONS (4)
  - DIARRHOEA [None]
  - DYSPNOEA [None]
  - NAUSEA [None]
  - PRURITUS [None]
